FAERS Safety Report 4490665-0 (Version None)
Quarter: 2004Q4

REPORT INFORMATION
  Report Type: 
  Country: None (occurrence: None)
  Receive Date: 20041102
  Receipt Date: 20040901
  Transmission Date: 20050328
  Serious: Yes (Death, Other)
  Sender: FDA-Public Use
  Company Number: US-GLAXOSMITHKLINE-A0524209A

PATIENT
  Sex: Male

DRUGS (1)
  1. ADVAIR [Suspect]
     Indication: DRUG USE FOR UNKNOWN INDICATION

REACTIONS (2)
  - DEATH [None]
  - LUNG NEOPLASM MALIGNANT [None]
